FAERS Safety Report 20822036 (Version 1)
Quarter: 2022Q2

REPORT INFORMATION
  Report Type: Report from Study
  Country: KR (occurrence: KR)
  Receive Date: 20220512
  Receipt Date: 20220512
  Transmission Date: 20220720
  Serious: Yes (Hospitalization)
  Sender: FDA-Public Use
  Company Number: KR-TAKEDA-2022TUS031030

PATIENT
  Age: 44 Year
  Sex: Female

DRUGS (14)
  1. PEMETREXED [Suspect]
     Active Substance: PEMETREXED
     Indication: Non-small cell lung cancer
     Dosage: 500 MILLIGRAM/SQ. METER
     Route: 042
     Dates: start: 20220421
  2. CISPLATIN [Suspect]
     Active Substance: CISPLATIN
     Indication: Non-small cell lung cancer
     Dosage: 75 MILLIGRAM/SQ. METER
     Route: 042
     Dates: start: 20220421
  3. ULTRACET ER SEMI [Concomitant]
     Indication: Prophylaxis
     Dosage: UNK UNK, BID
     Route: 048
     Dates: start: 20220331, end: 20220410
  4. ULTRACET ER SEMI [Concomitant]
     Indication: Cancer pain
  5. TARUPAIN [Concomitant]
     Indication: Premedication
     Dosage: 5 MILLIGRAM, QD
     Route: 030
     Dates: start: 20220419, end: 20220419
  6. FOLIC ACID [Concomitant]
     Active Substance: FOLIC ACID
     Indication: Premedication
     Dosage: 1 MILLIGRAM, QD
     Route: 048
     Dates: start: 20220419
  7. LACTULOSE [Concomitant]
     Active Substance: LACTULOSE
     Indication: Constipation
     Dosage: 15 MILLILITER, QD
     Route: 048
     Dates: start: 20220428, end: 20220503
  8. MAGNESIUM OXIDE [Concomitant]
     Active Substance: MAGNESIUM OXIDE
     Indication: Constipation
     Dosage: 250 MILLIGRAM, BID
     Route: 048
     Dates: start: 20220428, end: 20220503
  9. MOSAPRIDE CITRATE [Concomitant]
     Active Substance: MOSAPRIDE CITRATE
     Indication: Prophylaxis
     Dosage: 15 MILLIGRAM, QD
     Route: 048
     Dates: start: 20220428, end: 20220506
  10. MOSAPRIDE CITRATE [Concomitant]
     Active Substance: MOSAPRIDE CITRATE
     Indication: Dyspepsia
  11. PARACET SEMI [Concomitant]
     Indication: Prophylaxis
     Dosage: UNK
     Route: 048
     Dates: start: 20220422
  12. PARACET SEMI [Concomitant]
     Indication: Cancer pain
  13. DEXAMETHASONE [Concomitant]
     Active Substance: DEXAMETHASONE
     Indication: Premedication
     Dosage: 4 MILLIGRAM, BID
     Route: 048
     Dates: start: 20220420, end: 20220422
  14. EMEND [Concomitant]
     Active Substance: APREPITANT
     Indication: Premedication
     Dosage: 125 MILLIGRAM, QD
     Route: 048
     Dates: start: 20220421, end: 20220423

REACTIONS (1)
  - Pyelonephritis acute [Not Recovered/Not Resolved]

NARRATIVE: CASE EVENT DATE: 20220507
